FAERS Safety Report 8860225 (Version 2)
Quarter: 2012Q4

REPORT INFORMATION
  Report Type: 
  Country: HR (occurrence: HR)
  Receive Date: 20121025
  Receipt Date: 20121107
  Transmission Date: 20130627
  Serious: Yes (Death)
  Sender: FDA-Public Use
  Company Number: PHHY2012HR095445

PATIENT
  Age: 78 Year
  Sex: Female
  Weight: 83 kg

DRUGS (2)
  1. GLIVEC [Suspect]
     Indication: CHRONIC MYELOID LEUKAEMIA
     Dosage: UNK UKN, UNK
     Route: 048
  2. ANTIHYPERTENSIVE DRUGS [Concomitant]

REACTIONS (2)
  - Diabetes mellitus [Fatal]
  - Cardiac disorder [Fatal]
